FAERS Safety Report 8387616 (Version 3)
Quarter: 2012Q4

REPORT INFORMATION
  Report Type: 
  Country: JP (occurrence: JP)
  Receive Date: 20120202
  Receipt Date: 20121026
  Transmission Date: 20130627
  Serious: Yes (Hospitalization)
  Sender: FDA-Public Use
  Company Number: JP-ALLERGAN-1201391US

PATIENT
  Age: 71 Year
  Sex: Female

DRUGS (9)
  1. LUMIGAN [Suspect]
     Indication: NORMAL TENSION GLAUCOMA
     Dosage: 1 Gtt, UNK
     Route: 047
     Dates: start: 20110929
  2. GATIFLOXACIN [Suspect]
     Indication: POSTOPERATIVE ANTIBIOTIC COVER
     Dosage: 6 Gtt, tid
     Route: 047
     Dates: start: 20110929, end: 20111212
  3. ODOMEL [Concomitant]
     Dosage: UNK
     Dates: start: 20110929, end: 20111212
  4. ACTOS [Concomitant]
  5. NORVASC [Concomitant]
  6. ALDACTONE [Concomitant]
  7. PRAVASTATIN [Concomitant]
  8. EVISTA [Concomitant]
  9. NITROPEN [Concomitant]

REACTIONS (1)
  - Osteoarthritis [Recovering/Resolving]
